FAERS Safety Report 24449934 (Version 1)
Quarter: 2024Q4

REPORT INFORMATION
  Report Type: Other
  Country: PL (occurrence: PL)
  Receive Date: 20241017
  Receipt Date: 20241017
  Transmission Date: 20250115
  Serious: Yes (Other)
  Sender: STRIDES
  Company Number: PL-RECORDATI-2024007334

PATIENT
  Age: 68 Year

DRUGS (11)
  1. METFORMIN [Suspect]
     Active Substance: METFORMIN HYDROCHLORIDE
     Indication: Product used for unknown indication
     Dosage: 750 MILLIGRAM, QD (750 MG IN THE EVENING)
     Route: 065
  2. ATORVASTATIN CALCIUM [Suspect]
     Active Substance: ATORVASTATIN CALCIUM
     Indication: Product used for unknown indication
     Dosage: 40 MILLIGRAM, QD (40 MG IN THE MORNING)
     Route: 065
  3. INDAPAMIDE [Suspect]
     Active Substance: INDAPAMIDE
     Indication: Hypertension
     Dosage: 1.5 MILLIGRAM, QD (1.5 MG IN THE MORNING)
     Route: 065
  4. CLONIDINE [Suspect]
     Active Substance: CLONIDINE
     Indication: Hypertension
     Dosage: 75 MICROGRAM, BID (2 ? 75 ?G)
     Route: 065
  5. CLONIDINE [Suspect]
     Active Substance: CLONIDINE
     Dosage: 150 MICROGRAM, BID (INCREASE THE DOSE TO 2X 150 ?G  AFTER 3 DAYS)
     Route: 065
  6. BISOPROLOL [Suspect]
     Active Substance: BISOPROLOL\BISOPROLOL FUMARATE
     Indication: Hypertension
     Dosage: 10/10 MILLIGRAM, QD IN THE MORNING
     Route: 065
  7. EMPAGLIFLOZIN [Suspect]
     Active Substance: EMPAGLIFLOZIN
     Indication: Product used for unknown indication
     Dosage: 10 MILLIGRAM, QD (10 MG IN THE MORNING)
     Route: 065
  8. LERCANIDIPINE [Suspect]
     Active Substance: LERCANIDIPINE
     Indication: Hypertension
     Dosage: 20 MILLIGRAM, QD (20 MG IN THE MORNING)
     Route: 065
  9. ASPIRIN [Suspect]
     Active Substance: ASPIRIN
     Indication: Product used for unknown indication
     Dosage: 75 MILLIGRAM
     Route: 065
  10. SEMAGLUTIDE [Suspect]
     Active Substance: SEMAGLUTIDE
     Indication: Product used for unknown indication
     Dosage: 1 MG - ONCE A WEEK
     Route: 058
  11. RAMIPRIL [Suspect]
     Active Substance: RAMIPRIL

REACTIONS (3)
  - Hyperkalaemia [Unknown]
  - Drug ineffective [Recovered/Resolved]
  - Oedema peripheral [Unknown]
